FAERS Safety Report 8938412 (Version 1)
Quarter: 2012Q4

REPORT INFORMATION
  Report Type: 
  Country: IT (occurrence: IT)
  Receive Date: 20121203
  Receipt Date: 20121203
  Transmission Date: 20130627
  Serious: Yes (Other)
  Sender: FDA-Public Use
  Company Number: PHHY2012IT108945

PATIENT
  Age: 35 Year
  Sex: Male

DRUGS (2)
  1. OXCARBAZEPINE [Suspect]
     Indication: POST-TRAUMATIC EPILEPSY
     Dosage: UNK
  2. OXCARBAZEPINE [Suspect]
     Dosage: 1800 mg, Daily

REACTIONS (4)
  - Retrograde ejaculation [Recovered/Resolved]
  - Ejaculation failure [Recovered/Resolved]
  - Urine abnormality [Recovered/Resolved]
  - Semenuria [Recovered/Resolved]
